FAERS Safety Report 17487652 (Version 1)
Quarter: 2020Q1

REPORT INFORMATION
  Report Type: Spontaneous
  Country: US (occurrence: US)
  Receive Date: 20200303
  Receipt Date: 20200303
  Transmission Date: 20200409
  Serious: No
  Sender: FDA-Public Use
  Company Number: US-ALLERGAN-1947738US

PATIENT
  Sex: Female

DRUGS (1)
  1. SAVELLA [Suspect]
     Active Substance: MILNACIPRAN HYDROCHLORIDE
     Indication: PAIN
     Dosage: 12.5 MG
     Route: 065

REACTIONS (3)
  - Pruritus [Unknown]
  - Feeling hot [Unknown]
  - Headache [Unknown]
